FAERS Safety Report 13195356 (Version 1)
Quarter: 2017Q1

REPORT INFORMATION
  Report Type: Spontaneous
  Country: US (occurrence: US)
  Receive Date: 20170207
  Receipt Date: 20170207
  Transmission Date: 20170428
  Serious: Yes (Hospitalization)
  Sender: FDA-Public Use
  Company Number: None

PATIENT
  Age: 63 Year
  Sex: Female
  Weight: 79.5 kg

DRUGS (3)
  1. LEUCOVORIN CALCIUM. [Suspect]
     Active Substance: LEUCOVORIN CALCIUM
     Dates: end: 20170118
  2. 5-FLUOROURACIL (5-FU) [Suspect]
     Active Substance: FLUOROURACIL
     Dates: end: 20170118
  3. ELOXATIN [Suspect]
     Active Substance: OXALIPLATIN
     Dates: end: 20170118

REACTIONS (11)
  - Gastrointestinal haemorrhage [None]
  - Leukocytosis [None]
  - Diarrhoea [None]
  - Platelet count decreased [None]
  - Anaemia [None]
  - Gastric ulcer [None]
  - Syncope [None]
  - Hypovolaemic shock [None]
  - Rectal haemorrhage [None]
  - Blood sodium increased [None]
  - Blood potassium decreased [None]

NARRATIVE: CASE EVENT DATE: 20170125
